FAERS Safety Report 4954435-9 (Version None)
Quarter: 2006Q1

REPORT INFORMATION
  Report Type: 
  Country: None (occurrence: None)
  Receive Date: 20060327
  Receipt Date: 20060314
  Transmission Date: 20060701
  Serious: Yes (Other)
  Sender: FDA-Public Use
  Company Number: 2006PK00563

PATIENT
  Age: 24076 Day
  Sex: Female
  Weight: 70 kg

DRUGS (1)
  1. NAROPIN [Suspect]
     Indication: POSTOPERATIVE ANALGESIA
     Dosage: 12 MG/H; 0.2% SOLUTION
     Route: 008
     Dates: start: 20060313, end: 20060314

REACTIONS (5)
  - ABDOMINAL PAIN UPPER [None]
  - AGITATION [None]
  - DISORIENTATION [None]
  - FLUSHING [None]
  - MUSCLE SPASMS [None]
